FAERS Safety Report 10092508 (Version 1)
Quarter: 2014Q2

REPORT INFORMATION
  Report Type: Spontaneous
  Country: US (occurrence: US)
  Receive Date: 20140421
  Receipt Date: 20140421
  Transmission Date: 20141212
  Serious: No
  Sender: FDA-Public Use
  Company Number: US-SANOFI-AVENTIS-2013SA050974

PATIENT
  Age: 70 Year
  Sex: Female

DRUGS (5)
  1. ALLEGRA 24 HOUR [Suspect]
     Indication: HYPERSENSITIVITY
  2. DIPHENHYDRAMINE [Concomitant]
  3. CLARITIN [Concomitant]
  4. ZYRTEC [Concomitant]
  5. QUINIDINE [Concomitant]
     Indication: CARDIAC DISORDER

REACTIONS (2)
  - Insomnia [Unknown]
  - Drug intolerance [Unknown]
